FAERS Safety Report 5477131-0 (Version None)
Quarter: 2007Q4

REPORT INFORMATION
  Report Type: 
  Country: None (occurrence: None)
  Receive Date: 20071004
  Receipt Date: 20071002
  Transmission Date: 20080405
  Serious: Yes (Hospitalization)
  Sender: FDA-Public Use
  Company Number: HQWYE252509AUG06

PATIENT
  Age: 53 Year
  Sex: Male

DRUGS (11)
  1. AVLOCARDYL LP [Suspect]
     Route: 048
  2. ACTISKENAN [Suspect]
     Dosage: NOT PROVIDED
     Route: 048
     Dates: start: 20060705, end: 20060710
  3. STABLON [Suspect]
     Indication: DEPRESSION
     Route: 048
  4. ALDACTONE [Suspect]
     Route: 048
  5. CLAMOXYL [Concomitant]
     Route: 042
  6. LANTUS [Concomitant]
     Route: 065
  7. DUPHALAC [Concomitant]
     Route: 065
     Dates: end: 20060701
  8. VITAMIN B1 AND B6 [Concomitant]
     Route: 065
  9. NOVORAPID [Concomitant]
     Route: 065
  10. PENTOXIFYLLINE [Suspect]
     Indication: CIRRHOSIS ALCOHOLIC
     Route: 048
     Dates: start: 20060106, end: 20060713
  11. DAFALGAN CODEINE [Suspect]
     Route: 048
     Dates: start: 20060705, end: 20060710

REACTIONS (2)
  - HEPATIC ENCEPHALOPATHY [None]
  - INFECTION [None]
